FAERS Safety Report 7330665-6 (Version None)
Quarter: 2011Q1

REPORT INFORMATION
  Report Type: 
  Country: None (occurrence: None)
  Receive Date: 20110225
  Receipt Date: 20110225
  Transmission Date: 20110831
  Serious: Yes (Hospitalization)
  Sender: FDA-Public Use
  Company Number: None

PATIENT
  Sex: Female
  Weight: 98 kg

DRUGS (30)
  1. PRADAXA [Suspect]
     Indication: ATRIAL FIBRILLATION
     Dosage: 150MG BID PO
     Route: 048
  2. PRADAXA [Suspect]
     Indication: CEREBROVASCULAR ACCIDENT
     Dosage: 150MG BID PO
     Route: 048
  3. METRONIDAZOLE [Concomitant]
  4. DILTIAZEM [Concomitant]
  5. SPIRONOLACTONE [Concomitant]
  6. FUROSEMIDE [Concomitant]
  7. HEPARIN SODIUM [Suspect]
  8. INSULIN ASPART [Concomitant]
  9. APAP TAB [Concomitant]
  10. LISINOPRIL [Concomitant]
  11. MORPHINE SULFATE [Concomitant]
  12. ATORVASTATIN CALCIUM [Concomitant]
  13. ASPIRIN [Concomitant]
  14. THIAMINE [Concomitant]
  15. CARVEDILOL [Concomitant]
  16. ATENOLOL [Concomitant]
  17. LEVOTHYROXINE SODIUM [Concomitant]
  18. MAGNESIUM HYDROXIDE [Concomitant]
  19. VANCOMYCIN HCL [Concomitant]
  20. LINEZOLID [Suspect]
  21. POTASSIUM CHLORDIDE [Concomitant]
  22. MULTI-VITAMINS [Concomitant]
  23. FERROUS SULFATE TAB [Concomitant]
  24. MULTI-VITAMINS [Concomitant]
  25. PANTOPRAZOLE [Concomitant]
  26. MEROPENEM [Concomitant]
  27. CYANOCOBALAMIN [Concomitant]
  28. LORATADINE [Concomitant]
  29. LABETALOL HCL [Concomitant]
  30. WARFARIN SODIUM [Suspect]

REACTIONS (6)
  - GASTROINTESTINAL HAEMORRHAGE [None]
  - URINARY TRACT INFECTION [None]
  - ANAEMIA [None]
  - MENTAL STATUS CHANGES [None]
  - FALL [None]
  - ANKLE FRACTURE [None]
